FAERS Safety Report 6081395-2 (Version None)
Quarter: 2009Q1

REPORT INFORMATION
  Report Type: 
  Country: None (occurrence: None)
  Receive Date: 20090213
  Receipt Date: 20090209
  Transmission Date: 20090719
  Serious: Yes (Hospitalization)
  Sender: FDA-Public Use
  Company Number: 2009SP003011

PATIENT
  Age: 60 Year
  Sex: Female
  Weight: 65 kg

DRUGS (9)
  1. PEG-INTRON [Suspect]
     Indication: HEPATITIS C
     Dosage: 100 MCG; QW; SC
     Route: 058
     Dates: start: 20080428
  2. RIBAVIRIN [Suspect]
     Indication: HEPATITIS C
     Dosage: 1000 MG; QD; PO
     Route: 048
     Dates: start: 20080428
  3. EPREX [Concomitant]
  4. EVISTA [Concomitant]
  5. ATENOLOL [Concomitant]
  6. CITALOPRAM HYDROBROMIDE [Concomitant]
  7. TRAZODONE HCL [Concomitant]
  8. ACTONEL [Concomitant]
  9. ASPIRIN [Concomitant]

REACTIONS (1)
  - APPENDICITIS [None]
